FAERS Safety Report 19989839 (Version 1)
Quarter: 2021Q4

REPORT INFORMATION
  Report Type: Spontaneous
  Country: FR (occurrence: FR)
  Receive Date: 20211025
  Receipt Date: 20211025
  Transmission Date: 20220303
  Serious: Yes (Hospitalization, Other)
  Sender: FDA-Public Use
  Company Number: FR-AFSSAPS-BS20211846

PATIENT
  Age: 63 Year
  Sex: Female
  Weight: 55 kg

DRUGS (3)
  1. AZITHROMYCIN ANHYDROUS [Suspect]
     Active Substance: AZITHROMYCIN ANHYDROUS
     Indication: Pharyngitis
     Dosage: UNK
     Route: 048
     Dates: start: 20210716, end: 20210724
  2. PREDNISONE [Suspect]
     Active Substance: PREDNISONE
     Indication: Pharyngitis
     Dosage: UNK
     Route: 048
     Dates: start: 20210722, end: 20210725
  3. COMIRNATY [Suspect]
     Active Substance: TOZINAMERAN
     Indication: COVID-19 immunisation
     Dosage: 1 DOSAGE FORM(1 TOTAL)
     Route: 030
     Dates: start: 20210702, end: 20210702

REACTIONS (1)
  - Ophthalmic herpes zoster [Recovered/Resolved]

NARRATIVE: CASE EVENT DATE: 20210727
